FAERS Safety Report 9540724 (Version 2)
Quarter: 2013Q3

REPORT INFORMATION
  Report Type: Spontaneous
  Country: US (occurrence: US)
  Receive Date: 20130920
  Receipt Date: 20130926
  Transmission Date: 20140515
  Serious: Yes (Death)
  Sender: FDA-Public Use
  Company Number: US-LUNDBECK-DKLU1093726

PATIENT
  Age: 8 Year
  Sex: Male
  Weight: 26.9 kg

DRUGS (6)
  1. ONFI [Suspect]
     Indication: EPILEPSY
     Route: 048
     Dates: start: 20130218
  2. ONFI [Suspect]
     Route: 048
     Dates: start: 20130703
  3. ONFI [Suspect]
     Route: 048
     Dates: start: 20130703
  4. ONFI [Suspect]
     Route: 048
     Dates: start: 20130703
  5. KEPPRA [Suspect]
     Indication: EPILEPSY
     Route: 048
     Dates: start: 20130119
  6. KEPPRA [Suspect]

REACTIONS (4)
  - Sudden unexplained death in epilepsy [Fatal]
  - Conjunctivitis allergic [Recovering/Resolving]
  - Tinea capitis [Recovered/Resolved]
  - Cataract [Unknown]
